FAERS Safety Report 5000628-4 (Version None)
Quarter: 2006Q2

REPORT INFORMATION
  Report Type: 
  Country: None (occurrence: None)
  Receive Date: 20060512
  Receipt Date: 20060407
  Transmission Date: 20061013
  Serious: Yes (Death)
  Sender: FDA-Public Use
  Company Number: GB-BRISTOL-MYERS SQUIBB COMPANY-13340880

PATIENT
  Age: 66 Year
  Sex: Male

DRUGS (10)
  1. CYCLOPHOSPHAMIDE [Suspect]
     Indication: T-CELL LYMPHOMA
  2. BLEOMYCIN [Suspect]
     Indication: T-CELL LYMPHOMA
  3. CISPLATIN [Suspect]
     Indication: T-CELL LYMPHOMA
  4. ETOPOSIDE [Suspect]
     Indication: T-CELL LYMPHOMA
  5. METHOTREXATE [Suspect]
     Indication: T-CELL LYMPHOMA
  6. VINCRISTINE [Suspect]
     Indication: T-CELL LYMPHOMA
  7. GEMCITABINE [Suspect]
     Indication: T-CELL LYMPHOMA
  8. PREDNISOLONE [Suspect]
     Indication: T-CELL LYMPHOMA
  9. RITUXIMAB [Suspect]
     Indication: T-CELL LYMPHOMA
  10. CHLORAMBUCIL [Concomitant]

REACTIONS (2)
  - LIVER DISORDER [None]
  - T-CELL LYMPHOMA [None]
